FAERS Safety Report 8474895-9 (Version None)
Quarter: 2012Q2

REPORT INFORMATION
  Report Type: 
  Country: None (occurrence: None)
  Receive Date: 20120621
  Receipt Date: 20120612
  Transmission Date: 20120825
  Serious: Yes (Death)
  Sender: FDA-Public Use
  Company Number: TCI2012A03111

PATIENT
  Age: 89 Year
  Sex: Male

DRUGS (10)
  1. MUCODYNE (CARBOCISTEINE) [Concomitant]
  2. MAGLAX (MAGNESSIUM OXIDE) [Concomitant]
  3. CASODEX [Concomitant]
  4. NU-LOTAN (LOARTAN POTASSIUM) [Concomitant]
  5. SOL-MELCORT (METHYLPREDNISOLONE SODIUM SUCCINATE) [Concomitant]
  6. ROZEREM [Suspect]
     Dosage: 8 MG (8 MG, 1 IN 1 D), PER ORAL
     Route: 048
     Dates: start: 20120423, end: 20120506
  7. FLIVAS OD (NAFTOPIDIL) [Concomitant]
  8. LENDEM D (BROTIZOLAM) [Concomitant]
  9. SULBACILLIN (AMPICILLIN SODIUM, SULBACTAM SODIUM) [Concomitant]
  10. WYSTAL (CEFOPERAZONE SODIUM, SULFACTAM SODIUM) [Concomitant]

REACTIONS (3)
  - CARDIO-RESPIRATORY ARREST [None]
  - PNEUMONIA [None]
  - CONDITION AGGRAVATED [None]
